FAERS Safety Report 11423006 (Version 1)
Quarter: 2015Q3

REPORT INFORMATION
  Report Type: Spontaneous
  Country: AU (occurrence: None)
  Receive Date: 20150826
  Receipt Date: 20150826
  Transmission Date: 20151125
  Serious: No
  Sender: FDA-Public Use
  Company Number: None

PATIENT
  Age: 31 Year
  Sex: Female
  Weight: 72 kg

DRUGS (2)
  1. SERTRALINE [Suspect]
     Active Substance: SERTRALINE HYDROCHLORIDE
     Indication: DEPRESSION
     Dosage: ONE AT BREAKFAST DAILY TAKEN BY MOUTH
     Route: 048
  2. NUROFEN/PANADOL [Concomitant]

REACTIONS (6)
  - Bradyphrenia [None]
  - Dizziness [None]
  - Impaired driving ability [None]
  - Tremor [None]
  - Headache [None]
  - Presyncope [None]

NARRATIVE: CASE EVENT DATE: 20150608
